FAERS Safety Report 9803606 (Version 1)
Quarter: 2014Q1

REPORT INFORMATION
  Report Type: Spontaneous
  Country: US (occurrence: US)
  Receive Date: 20140108
  Receipt Date: 20140108
  Transmission Date: 20141002
  Serious: Yes (Death)
  Sender: FDA-Public Use
  Company Number: US-UCBSA-108385

PATIENT
  Age: 53 Year
  Sex: Female

DRUGS (5)
  1. ACETAMINOPHEN/ HYDROCODONE [Suspect]
  2. ETHANOL [Suspect]
  3. ACETAMINOPHEN [Suspect]
  4. FENTANYL [Suspect]
  5. ZOLPIDEM [Suspect]

REACTIONS (1)
  - Toxicity to various agents [Fatal]
